FAERS Safety Report 22872450 (Version 2)
Quarter: 2025Q2

REPORT INFORMATION
  Report Type: Spontaneous
  Country: ES (occurrence: ES)
  Receive Date: 20230828
  Receipt Date: 20250429
  Transmission Date: 20250717
  Serious: Yes (Hospitalization)
  Sender: AUROBINDO
  Company Number: ES-AUROBINDO-AUR-APL-2023-055700

PATIENT
  Age: 71 Year
  Sex: Male

DRUGS (1)
  1. VORICONAZOLE [Suspect]
     Active Substance: VORICONAZOLE
     Indication: Scedosporium infection
     Dosage: 300 MILLIGRAM, TWO TIMES A DAY
     Route: 042

REACTIONS (2)
  - Contusion [Recovered/Resolved]
  - Skin lesion [Recovered/Resolved]
